FAERS Safety Report 5526299-6 (Version None)
Quarter: 2007Q4

REPORT INFORMATION
  Report Type: 
  Country: None (occurrence: None)
  Receive Date: 20071121
  Receipt Date: 20071121
  Transmission Date: 20080405
  Serious: No
  Sender: FDA-Public Use
  Company Number: None

PATIENT
  Sex: Male
  Weight: 29.4838 kg

DRUGS (1)
  1. SINGULAIR [Suspect]
     Indication: HYPERSENSITIVITY
     Dosage: 10 MG ONE TABLET DAILY PO
     Route: 048
     Dates: start: 20070921, end: 20071110

REACTIONS (6)
  - ABDOMINAL PAIN UPPER [None]
  - AGGRESSION [None]
  - DEPRESSION [None]
  - IRRITABILITY [None]
  - MOOD SWINGS [None]
  - NAUSEA [None]
